FAERS Safety Report 24980122 (Version 1)
Quarter: 2025Q1

REPORT INFORMATION
  Report Type: Spontaneous
  Country: US (occurrence: None)
  Receive Date: 20250214
  Receipt Date: 20250214
  Transmission Date: 20250409
  Serious: Yes (Other)
  Sender: FDA-CTU
  Company Number: None

PATIENT
  Age: 77 Year
  Sex: Male
  Weight: 68.49 kg

DRUGS (6)
  1. SULFAMETHOXAZOLE\TRIMETHOPRIM [Suspect]
     Active Substance: SULFAMETHOXAZOLE\TRIMETHOPRIM
     Indication: Orchitis
     Dosage: FREQUENCY : TWICE A DAY;?
     Route: 048
     Dates: start: 20250103, end: 20250109
  2. DIFLUPREDNAME 0.05% [Concomitant]
     Dosage: FREQUENCY : TWICE A DAY;?
  3. KETOROLAC [Concomitant]
     Active Substance: KETOROLAC TROMETHAMINE
     Dosage: FREQUENCY : DAILY;?
  4. TIMOLOL MALEATE [Concomitant]
     Active Substance: TIMOLOL MALEATE
     Dosage: FREQUENCY : DAILY;?
  5. Cosopt PF 2%/0.5%  Timolol Malfate [Concomitant]
     Dosage: FREQUENCY : DAILY;?
  6. VITAMINS [Concomitant]
     Active Substance: VITAMINS

REACTIONS (2)
  - Constipation [None]
  - Urinary retention [None]

NARRATIVE: CASE EVENT DATE: 20250106
